FAERS Safety Report 25771204 (Version 1)
Quarter: 2025Q3

REPORT INFORMATION
  Report Type: Spontaneous
  Country: US (occurrence: US)
  Receive Date: 20250908
  Receipt Date: 20250908
  Transmission Date: 20251021
  Serious: No
  Sender: DOMPE FARMACEUTICI
  Company Number: US-FARMAPROD-202504-1091

PATIENT
  Sex: Male

DRUGS (15)
  1. OXERVATE [Suspect]
     Active Substance: CENEGERMIN-BKBJ
     Indication: Neurotrophic keratopathy
     Route: 047
     Dates: start: 20250321
  2. VYZULTA [Concomitant]
     Active Substance: LATANOPROSTENE BUNOD
  3. OLMESARTAN [Concomitant]
     Active Substance: OLMESARTAN
  4. DULOXETINE HYDROCHLORIDE [Concomitant]
     Active Substance: DULOXETINE HYDROCHLORIDE
  5. VITAMIN D3 [Concomitant]
     Active Substance: CHOLECALCIFEROL
  6. SIMVASTATIN [Concomitant]
     Active Substance: SIMVASTATIN
  7. GABAPENTIN [Concomitant]
     Active Substance: GABAPENTIN
  8. TADALAFIL [Concomitant]
     Active Substance: TADALAFIL
  9. FENOFIBRATE [Concomitant]
     Active Substance: FENOFIBRATE
  10. MOUNJARO [Concomitant]
     Active Substance: TIRZEPATIDE
  11. METFORMIN HYDROCHLORIDE [Concomitant]
     Active Substance: METFORMIN HYDROCHLORIDE
  12. OLMESARTAN MEDOXOMIL [Concomitant]
     Active Substance: OLMESARTAN MEDOXOMIL
  13. CARVEDILOL [Concomitant]
     Active Substance: CARVEDILOL
  14. FARXIGA [Concomitant]
     Active Substance: DAPAGLIFLOZIN PROPANEDIOL
  15. KYZATREX [Concomitant]
     Active Substance: TESTOSTERONE UNDECANOATE

REACTIONS (5)
  - Tension headache [Unknown]
  - Eye irritation [Unknown]
  - Ocular hyperaemia [Unknown]
  - Eye pain [Unknown]
  - Foreign body sensation in eyes [Unknown]
